FAERS Safety Report 8618531-7 (Version None)
Quarter: 2012Q3

REPORT INFORMATION
  Report Type: 
  Country: None (occurrence: None)
  Receive Date: 20120814
  Receipt Date: 20120814
  Transmission Date: 20120928
  Serious: Yes (Hospitalization, Other)
  Sender: FDA-Public Use
  Company Number: None

PATIENT
  Sex: Female
  Weight: 81.6475 kg

DRUGS (7)
  1. . [Concomitant]
  2. . [Concomitant]
  3. . [Concomitant]
  4. VIIBRYD [Suspect]
     Indication: DEPRESSION
     Dosage: 1 TABLET DAILY PO 1 3/4 MONTHS
     Route: 048
     Dates: start: 20120615, end: 20120806
  5. . [Concomitant]
  6. . [Concomitant]
  7. . [Concomitant]

REACTIONS (4)
  - INSOMNIA [None]
  - HYPOMANIA [None]
  - STRESS [None]
  - NONSPECIFIC REACTION [None]
